FAERS Safety Report 16977820 (Version 1)
Quarter: 2019Q4

REPORT INFORMATION
  Report Type: Spontaneous
  Country: US (occurrence: US)
  Receive Date: 20191031
  Receipt Date: 20191031
  Transmission Date: 20200122
  Serious: Yes (Hospitalization)
  Sender: FDA-Public Use
  Company Number: US-TEVA-2019-US-1128795

PATIENT
  Age: 63 Year
  Sex: Male

DRUGS (1)
  1. WARFARIN [Suspect]
     Active Substance: WARFARIN
     Indication: ATRIAL FIBRILLATION
     Route: 065

REACTIONS (8)
  - Spinal epidural haematoma [Recovered/Resolved]
  - Dysmetria [Recovered/Resolved]
  - Quadriparesis [Recovered/Resolved]
  - Hypotension [Recovered/Resolved]
  - Paraesthesia [Recovered/Resolved]
  - Neurogenic bladder [Recovered/Resolved]
  - Urinary retention [Recovered/Resolved]
  - Dyspraxia [Recovered/Resolved]
